FAERS Safety Report 6574784-0 (Version None)
Quarter: 2010Q1

REPORT INFORMATION
  Report Type: 
  Country: None (occurrence: None)
  Receive Date: 20100209
  Receipt Date: 20100126
  Transmission Date: 20100710
  Serious: Yes (Hospitalization)
  Sender: FDA-Public Use
  Company Number: PHHY2009MX54232

PATIENT
  Sex: Male

DRUGS (2)
  1. EXELON [Suspect]
     Indication: DEMENTIA ALZHEIMER'S TYPE
     Dosage: 4.6 MG/ 5CM2, 1 DF, QD
     Dates: start: 20091109, end: 20100114
  2. CAPTOPRIL [Suspect]
     Indication: HYPERTENSION
     Dosage: 2 UNK, UNK
     Route: 048
     Dates: start: 20091101, end: 20091201

REACTIONS (4)
  - DEHYDRATION [None]
  - DEMENTIA [None]
  - HYPOPHAGIA [None]
  - HYPOTENSION [None]
